FAERS Safety Report 7258146-9 (Version None)
Quarter: 2011Q1

REPORT INFORMATION
  Report Type: 
  Country: None (occurrence: None)
  Receive Date: 20110129
  Receipt Date: 20100728
  Transmission Date: 20110831
  Serious: No
  Sender: FDA-Public Use
  Company Number: US-ABBOTT-10P-163-0660031-00

PATIENT
  Sex: Female

DRUGS (6)
  1. CENTRUM [Concomitant]
     Indication: PRODUCT USED FOR UNKNOWN INDICATION
     Dosage: DAILY
  2. HUMIRA [Suspect]
     Dosage: DAY 15
     Route: 058
  3. HUMIRA [Suspect]
     Indication: CROHN'S DISEASE
     Dosage: DAY 1
     Route: 058
     Dates: start: 20100715
  4. IMURAN [Concomitant]
     Indication: CROHN'S DISEASE
  5. HUMIRA [Suspect]
     Route: 058
  6. ALLEGRA [Concomitant]
     Indication: HYPERSENSITIVITY
     Dosage: TWICE DAILY AS NEEDED

REACTIONS (5)
  - BLISTER [None]
  - MALAISE [None]
  - PAIN [None]
  - NAUSEA [None]
  - CHILLS [None]
